FAERS Safety Report 15640826 (Version 1)
Quarter: 2018Q4

REPORT INFORMATION
  Report Type: Spontaneous
  Country: PT (occurrence: PT)
  Receive Date: 20181120
  Receipt Date: 20181120
  Transmission Date: 20190205
  Serious: Yes (Other)
  Sender: FDA-Public Use
  Company Number: PT-BAUSCH-BL-2018-031555

PATIENT
  Age: 21 Year
  Sex: Female

DRUGS (2)
  1. DICLOFENAC [Suspect]
     Active Substance: DICLOFENAC
     Indication: SWELLING
     Route: 050
     Dates: start: 20180430, end: 20180605
  2. TRANSACT LAT [Interacting]
     Active Substance: FLURBIPROFEN
     Indication: TENDONITIS
     Route: 061

REACTIONS (4)
  - Movement disorder [Recovered/Resolved]
  - Arthralgia [Recovered/Resolved]
  - Joint swelling [Recovered/Resolved]
  - Drug interaction [Unknown]

NARRATIVE: CASE EVENT DATE: 20180601
